FAERS Safety Report 13711420 (Version 1)
Quarter: 2017Q3

REPORT INFORMATION
  Report Type: Spontaneous
  Country: AT (occurrence: AT)
  Receive Date: 20170703
  Receipt Date: 20170703
  Transmission Date: 20171127
  Serious: Yes (Death, Other)
  Sender: FDA-Public Use
  Company Number: AT-MYLANLABS-2017M1039406

PATIENT

DRUGS (3)
  1. ESCITALOPRAM [Suspect]
     Active Substance: ESCITALOPRAM OXALATE
     Indication: PRODUCT USED FOR UNKNOWN INDICATION
     Dosage: 1 DF, QD
     Dates: end: 20161024
  2. DOMINAL (PROTHIPENDYL HYDROCHLORIDE) [Interacting]
     Active Substance: PROTHIPENDYL HYDROCHLORIDE
     Indication: RESTLESSNESS
     Dosage: 1 DF, QD
     Dates: start: 20161024, end: 20161026
  3. ESOMEPRAZOLE [Interacting]
     Active Substance: ESOMEPRAZOLE
     Indication: PRODUCT USED FOR UNKNOWN INDICATION
     Dosage: 1 DF, QD

REACTIONS (1)
  - Asphyxia [Fatal]

NARRATIVE: CASE EVENT DATE: 20161026
